FAERS Safety Report 16492126 (Version 1)
Quarter: 2019Q2

REPORT INFORMATION
  Report Type: Spontaneous
  Country: US (occurrence: US)
  Receive Date: 20190520
  Receipt Date: 20190520
  Transmission Date: 20190711
  Serious: Yes (Hospitalization, Other)
  Sender: FDA-Public Use
  Company Number: None

PATIENT
  Age: 63 Year
  Sex: Male

DRUGS (13)
  1. FENOFIBRATE TAB [Concomitant]
  2. PIOGLITAZONE TAB [Concomitant]
  3. CYCLOBENZAPR [Concomitant]
     Active Substance: CYCLOBENZAPRINE
  4. IBUPROFEN TAB [Concomitant]
  5. FEROSUL TAB [Concomitant]
  6. MELOXICAM TAB [Concomitant]
  7. TRUE METRIX TES GLUCOSE [Concomitant]
  8. STELARA [Suspect]
     Active Substance: USTEKINUMAB
     Indication: PRODUCT USED FOR UNKNOWN INDICATION
     Dosage: ?          OTHER DOSE:INJ 1 SYR;OTHER FREQUENCY:Q 3 MINTS;?
     Route: 058
     Dates: start: 20171208, end: 20190308
  9. LYRICA CAP [Concomitant]
  10. SIMVASTATIN TAB [Concomitant]
     Active Substance: SIMVASTATIN
  11. TRULICITY INJ [Concomitant]
  12. OMEPRAZOLE CAP [Concomitant]
     Active Substance: OMEPRAZOLE SODIUM
  13. PHENTERMINE TAB [Concomitant]

REACTIONS (2)
  - Knee arthroplasty [None]
  - Infection [None]

NARRATIVE: CASE EVENT DATE: 20190305
